FAERS Safety Report 9835346 (Version 2)
Quarter: 2014Q2

REPORT INFORMATION
  Report Type: Spontaneous
  Country: US (occurrence: US)
  Receive Date: 20140122
  Receipt Date: 20140424
  Transmission Date: 20141212
  Serious: No
  Sender: FDA-Public Use
  Company Number: US-BRISTOL-MYERS SQUIBB COMPANY-19953439

PATIENT
  Age: 73 Year
  Sex: Female

DRUGS (7)
  1. ELIQUIS [Suspect]
  2. GLIPIZIDE [Concomitant]
  3. METFORMIN [Concomitant]
  4. LOSARTAN [Concomitant]
     Dosage: 1DF= 50/12.5 MG.
  5. METOPROLOL [Concomitant]
  6. SIMVASTATIN [Concomitant]
  7. CARBIDOPA + LEVODOPA [Concomitant]
     Dosage: 1DF= 25/100 MG

REACTIONS (1)
  - Hallucination [Unknown]
